FAERS Safety Report 25379687 (Version 2)
Quarter: 2025Q4

REPORT INFORMATION
  Report Type: Report from Study
  Country: JP (occurrence: JP)
  Receive Date: 20250530
  Receipt Date: 20251001
  Transmission Date: 20260117
  Serious: Yes (Death)
  Sender: SHIONOGI
  Company Number: JP-shionogi-202500005407

PATIENT
  Age: 81 Year
  Sex: Male
  Weight: 62.1 kg

DRUGS (41)
  1. CEFIDEROCOL [Suspect]
     Active Substance: CEFIDEROCOL
     Indication: Pneumonia
     Route: 041
     Dates: start: 20240619, end: 20240624
  2. CEFIDEROCOL [Suspect]
     Active Substance: CEFIDEROCOL
     Indication: Liver abscess
  3. Flagyl Oral Tablets 250mg [Concomitant]
     Indication: Pneumonia
     Route: 048
     Dates: start: 20240619, end: 20240624
  4. Flagyl Oral Tablets 250mg [Concomitant]
     Indication: Liver abscess
  5. VANCOMYCIN [Concomitant]
     Active Substance: VANCOMYCIN
     Indication: Pneumonia
     Dosage: SINCE MORE THAN 2 WEEKS BEFORE THE START OF FETROJA
     Route: 065
     Dates: end: 20240619
  6. VANCOMYCIN [Concomitant]
     Active Substance: VANCOMYCIN
     Indication: Liver abscess
  7. MEROPENEM [Concomitant]
     Active Substance: MEROPENEM
     Indication: Pneumonia
     Route: 065
     Dates: start: 20240610, end: 20240619
  8. MEROPENEM [Concomitant]
     Active Substance: MEROPENEM
     Indication: Liver abscess
  9. METRONIDAZOLE [Concomitant]
     Active Substance: METRONIDAZOLE
     Indication: Pneumonia
     Route: 065
     Dates: start: 20240612, end: 20240614
  10. METRONIDAZOLE [Concomitant]
     Active Substance: METRONIDAZOLE
     Indication: Liver abscess
  11. CIPROFLOXACIN [Concomitant]
     Active Substance: CIPROFLOXACIN
     Indication: Pneumonia
     Route: 065
     Dates: start: 20240617, end: 20240624
  12. CIPROFLOXACIN [Concomitant]
     Active Substance: CIPROFLOXACIN
     Indication: Liver abscess
  13. KCL CORRECTIVE [Concomitant]
     Indication: Product used for unknown indication
     Route: 065
     Dates: start: 20240617, end: 20240619
  14. OMEPRAZOLE [Concomitant]
     Active Substance: OMEPRAZOLE
     Indication: Prophylaxis
     Dosage: SINCE BEFORE THE START OF FETROJA
     Route: 065
     Dates: end: 20240619
  15. SODIUM CHLORIDE [Concomitant]
     Active Substance: SODIUM CHLORIDE
     Indication: Prophylaxis
     Dosage: SINCE BEFORE THE START OF FETROJA
     Route: 065
     Dates: end: 20240619
  16. LASIX [Concomitant]
     Active Substance: FUROSEMIDE
     Indication: Product used for unknown indication
     Dosage: SINCE BEFORE THE START OF FETROJA
     Route: 065
     Dates: end: 20240624
  17. PANTHENOL [Concomitant]
     Active Substance: PANTHENOL
     Indication: Pneumonia
     Route: 065
     Dates: start: 20240620, end: 20240624
  18. PANTHENOL [Concomitant]
     Active Substance: PANTHENOL
     Indication: Liver abscess
  19. DAIMEDIN MULTI [Concomitant]
     Indication: Pneumonia
     Route: 065
     Dates: start: 20240620, end: 20240624
  20. DAIMEDIN MULTI [Concomitant]
     Indication: Liver abscess
  21. KIDMIN [AMINO ACIDS NOS] [Concomitant]
     Indication: Pneumonia
     Route: 065
     Dates: start: 20240620, end: 20240624
  22. KIDMIN [AMINO ACIDS NOS] [Concomitant]
     Indication: Liver abscess
  23. DEXTROSE [Concomitant]
     Active Substance: DEXTROSE MONOHYDRATE
     Indication: Pneumonia
     Route: 065
     Dates: start: 20240620, end: 20240624
  24. DEXTROSE [Concomitant]
     Active Substance: DEXTROSE MONOHYDRATE
     Indication: Liver abscess
  25. MENATETRENONE [Concomitant]
     Active Substance: MENATETRENONE
     Indication: Pneumonia
     Dosage: SINCE BEFORE THE START OF FETROJA
     Route: 065
     Dates: end: 20240619
  26. MENATETRENONE [Concomitant]
     Active Substance: MENATETRENONE
     Indication: Liver abscess
  27. DEXTROSE\SODIUM CHLORIDE\SODIUM LACTATE [Concomitant]
     Active Substance: DEXTROSE\SODIUM CHLORIDE\SODIUM LACTATE
     Indication: Pneumonia
     Route: 065
     Dates: start: 20240621, end: 20240624
  28. DEXTROSE\SODIUM CHLORIDE\SODIUM LACTATE [Concomitant]
     Active Substance: DEXTROSE\SODIUM CHLORIDE\SODIUM LACTATE
     Indication: Liver abscess
  29. NOREPINEPHRINE BITARTRATE [Concomitant]
     Active Substance: NOREPINEPHRINE BITARTRATE
     Indication: Pneumonia
     Route: 065
     Dates: start: 20240621, end: 20240625
  30. NOREPINEPHRINE BITARTRATE [Concomitant]
     Active Substance: NOREPINEPHRINE BITARTRATE
     Indication: Liver abscess
  31. SODIUM CHLORIDE [Concomitant]
     Active Substance: SODIUM CHLORIDE
     Indication: Pneumonia
     Dosage: SINCE BEFORE THE START OF FETROJA
     Route: 065
     Dates: end: 20240619
  32. SODIUM CHLORIDE [Concomitant]
     Active Substance: SODIUM CHLORIDE
     Indication: Liver abscess
     Route: 065
     Dates: start: 20240621, end: 20240625
  33. ALBUMIN HUMAN [Concomitant]
     Active Substance: ALBUMIN HUMAN
     Indication: Pneumonia
     Route: 065
     Dates: start: 20240621, end: 20240624
  34. ALBUMIN HUMAN [Concomitant]
     Active Substance: ALBUMIN HUMAN
     Indication: Liver abscess
  35. EZETIMIBE [Concomitant]
     Active Substance: EZETIMIBE
     Indication: Product used for unknown indication
     Route: 048
     Dates: start: 20240619, end: 20240624
  36. CARVEDILOL [Concomitant]
     Active Substance: CARVEDILOL
     Indication: Product used for unknown indication
     Route: 048
     Dates: start: 20240619, end: 20240621
  37. SILODOSIN OD [Concomitant]
     Indication: Product used for unknown indication
     Route: 048
     Dates: start: 20240619, end: 20240620
  38. TOLVAPTAN [Concomitant]
     Active Substance: TOLVAPTAN
     Indication: Product used for unknown indication
     Route: 048
     Dates: start: 20240621, end: 20240624
  39. ASPIRIN [Concomitant]
     Active Substance: ASPIRIN
     Indication: Product used for unknown indication
     Route: 048
     Dates: start: 20240619, end: 20240624
  40. LANSOPRAZOLE [Concomitant]
     Active Substance: LANSOPRAZOLE
     Indication: Prophylaxis
     Route: 048
     Dates: start: 20240619, end: 20240624
  41. EDOXABAN TOSYLATE [Concomitant]
     Active Substance: EDOXABAN TOSYLATE
     Indication: Product used for unknown indication
     Route: 048
     Dates: start: 20240621, end: 20240624

REACTIONS (3)
  - Renal impairment [Fatal]
  - Disseminated intravascular coagulation [Fatal]
  - Epistaxis [Fatal]

NARRATIVE: CASE EVENT DATE: 20240621
